FAERS Safety Report 8714994 (Version 2)
Quarter: 2012Q4

REPORT INFORMATION
  Report Type: 
  Country: US (occurrence: US)
  Receive Date: 20120809
  Receipt Date: 20121219
  Transmission Date: 20130627
  Serious: Yes (Hospitalization)
  Sender: FDA-Public Use
  Company Number: US-JNJFOC-20111107478

PATIENT

DRUGS (1)
  1. EVICEL [Suspect]
     Indication: PTERYGIUM OPERATION
     Route: 065

REACTIONS (2)
  - Inflammation [Unknown]
  - Off label use [Unknown]
